FAERS Safety Report 7893653-7 (Version None)
Quarter: 2011Q4

REPORT INFORMATION
  Report Type: 
  Country: None (occurrence: None)
  Receive Date: 20111104
  Receipt Date: 20111027
  Transmission Date: 20120403
  Serious: Yes (Other)
  Sender: FDA-Public Use
  Company Number: NL-GLAXOSMITHKLINE-B0760491A

PATIENT
  Sex: Male
  Weight: 85 kg

DRUGS (2)
  1. FLUTICASONE PROPIONATE [Suspect]
     Indication: POLYP
     Dosage: .2ML PER DAY
     Route: 045
     Dates: start: 20110413, end: 20111015
  2. TAMSULOSIN HYDROCHLORIDE [Concomitant]
     Dosage: .4MG PER DAY
     Route: 048
     Dates: start: 20030101

REACTIONS (2)
  - GLAUCOMA [None]
  - RHINITIS [None]
